FAERS Safety Report 10777245 (Version 1)
Quarter: 2015Q1

REPORT INFORMATION
  Report Type: Other
  Country: US (occurrence: US)
  Receive Date: 20150209
  Receipt Date: 20150209
  Transmission Date: 20150721
  Serious: Yes (Death)
  Sender: FDA-Public Use
  Company Number: US-FRI-1000074421

PATIENT
  Age: 31 Year
  Sex: Male

DRUGS (5)
  1. CITALOPRAM [Suspect]
     Active Substance: CITALOPRAM HYDROBROMIDE
  2. COCAINE [Suspect]
     Active Substance: COCAINE
  3. QUININE [Suspect]
     Active Substance: QUININE
  4. HEROIN [Suspect]
     Active Substance: DIACETYLMORPHINE
  5. ALPRAZOLAM. [Suspect]
     Active Substance: ALPRAZOLAM

REACTIONS (1)
  - Drug abuse [Fatal]
